FAERS Safety Report 9606706 (Version 2)
Quarter: 2014Q4

REPORT INFORMATION
  Report Type: Spontaneous
  Country: US (occurrence: US)
  Receive Date: 20131008
  Receipt Date: 20141006
  Transmission Date: 20150529
  Serious: No
  Sender: FDA-Public Use
  Company Number: US-AMGEN-USASP2013065100

PATIENT
  Sex: Female

DRUGS (1)
  1. PROLIA [Suspect]
     Active Substance: DENOSUMAB
     Indication: OSTEOPOROSIS POSTMENOPAUSAL
     Dosage: UNK
     Route: 065

REACTIONS (11)
  - Arthralgia [Unknown]
  - Myalgia [Unknown]
  - Discomfort [Unknown]
  - Hypersensitivity [Unknown]
  - Rash erythematous [Unknown]
  - Pelvic pain [Not Recovered/Not Resolved]
  - Blood cholesterol abnormal [Unknown]
  - Eczema [Unknown]
  - Back pain [Not Recovered/Not Resolved]
  - Joint range of motion decreased [Unknown]
  - Fungal infection [Unknown]
